FAERS Safety Report 10026969 (Version 1)
Quarter: 2014Q1

REPORT INFORMATION
  Report Type: Spontaneous
  Country: US (occurrence: US)
  Receive Date: 20140321
  Receipt Date: 20140321
  Transmission Date: 20141002
  Serious: Yes (Other)
  Sender: FDA-Public Use
  Company Number: US-JNJFOC-20140310199

PATIENT
  Sex: Female

DRUGS (1)
  1. XARELTO [Suspect]
     Indication: PRODUCT USED FOR UNKNOWN INDICATION
     Route: 048
     Dates: start: 20140223

REACTIONS (5)
  - Haemorrhage [Unknown]
  - Eye haemorrhage [Unknown]
  - Asthenia [Unknown]
  - Epistaxis [Unknown]
  - Dizziness [Unknown]
